FAERS Safety Report 8049132-X (Version None)
Quarter: 2012Q1

REPORT INFORMATION
  Report Type: 
  Country: None (occurrence: None)
  Receive Date: 20120117
  Receipt Date: 20120106
  Transmission Date: 20120608
  Serious: Yes (Death, Life-Threatening, Hospitalization, Other)
  Sender: FDA-Public Use
  Company Number: DK-AMGEN-DNKSP2012002223

PATIENT
  Age: 64 Year
  Sex: Male

DRUGS (2)
  1. CYCLOSPORINE [Concomitant]
     Indication: PSORIASIS
     Dosage: 200-250 MG X1
     Route: 065
     Dates: start: 19980101, end: 20050101
  2. ENBREL [Suspect]
     Indication: PSORIASIS
     Dosage: 50 MG, WEEKLY
     Route: 058
     Dates: start: 20050910, end: 20070101

REACTIONS (7)
  - FATIGUE [None]
  - NON-SMALL CELL LUNG CANCER [None]
  - CARDIAC ARREST [None]
  - PERIPHERAL EMBOLISM [None]
  - WEIGHT DECREASED [None]
  - ADENOCARCINOMA [None]
  - DYSPNOEA [None]
